FAERS Safety Report 10161925 (Version 1)
Quarter: 2014Q2

REPORT INFORMATION
  Report Type: Spontaneous
  Country: US (occurrence: None)
  Receive Date: 20140507
  Receipt Date: 20140507
  Transmission Date: 20141212
  Serious: Yes (Hospitalization)
  Sender: FDA-Public Use
  Company Number: AUR-APL-2014-05361

PATIENT
  Age: 69 Year
  Sex: Male

DRUGS (2)
  1. METFORMIN (METFORMIN) [Suspect]
     Indication: DIABETES MELLITUS
  2. ENBREL (ETANERCEPT) [Suspect]
     Indication: ANKYLOSING SPONDYLITIS
     Dosage: (50 MG, 1 IN 1 WK), UNKNOWN
     Dates: start: 20130516, end: 20131104

REACTIONS (3)
  - Escherichia infection [None]
  - Toxicity to various agents [None]
  - Malaise [None]
